FAERS Safety Report 7009346-4 (Version None)
Quarter: 2010Q3

REPORT INFORMATION
  Report Type: 
  Country: None (occurrence: None)
  Receive Date: 20100921
  Receipt Date: 20100909
  Transmission Date: 20110219
  Serious: Yes (Hospitalization)
  Sender: FDA-Public Use
  Company Number: DSJ-2010-09731

PATIENT
  Age: 56 Year
  Sex: Female

DRUGS (8)
  1. AMLODIPINE BESYLATE AND OLMESARTAN MEDOXOMIL [Suspect]
     Indication: HYPERTENSION
     Dosage: 40/10 MG (1 IN 1 D), PER ORAL
     Route: 048
     Dates: start: 20080101, end: 20100826
  2. METOPROLOL TARTRATE [Concomitant]
  3. CLONIDINE [Concomitant]
  4. ENALAPRIL MALEATE [Concomitant]
  5. ACETYLSALICYLIC ACID SRT [Concomitant]
  6. FLUOXETINE [Concomitant]
  7. ISOSORBIDE DINITRATE [Suspect]
  8. SIMVASTATIN [Concomitant]

REACTIONS (7)
  - BLOOD PRESSURE FLUCTUATION [None]
  - CONDITION AGGRAVATED [None]
  - DRUG INEFFECTIVE [None]
  - HYPERCHOLESTEROLAEMIA [None]
  - HYPERMETROPIA [None]
  - MYOPIA [None]
  - WEIGHT INCREASED [None]
